FAERS Safety Report 15762708 (Version 1)
Quarter: 2018Q4

REPORT INFORMATION
  Report Type: Spontaneous
  Country: FR (occurrence: FR)
  Receive Date: 20181226
  Receipt Date: 20181226
  Transmission Date: 20190205
  Serious: Yes (Other)
  Sender: FDA-Public Use
  Company Number: FR-009507513-1811FRA001835

PATIENT
  Age: 39 Year
  Sex: Female

DRUGS (1)
  1. NEXPLANON [Suspect]
     Active Substance: ETONOGESTREL
     Dosage: 1 DOSAGE FORM, IMPLANT IN THE LEFT ARM
     Route: 059
     Dates: start: 20150226

REACTIONS (8)
  - Female sterilisation [Unknown]
  - Complication associated with device [Recovered/Resolved]
  - Complication of device insertion [Recovered/Resolved]
  - Device embolisation [Not Recovered/Not Resolved]
  - Device dislocation [Not Recovered/Not Resolved]
  - Vaginal haemorrhage [Unknown]
  - Incorrect product administration duration [Unknown]
  - Complication of device removal [Not Recovered/Not Resolved]

NARRATIVE: CASE EVENT DATE: 20150226
